FAERS Safety Report 14961739 (Version 1)
Quarter: 2018Q2

REPORT INFORMATION
  Report Type: Spontaneous
  Country: US (occurrence: US)
  Receive Date: 20180601
  Receipt Date: 20180601
  Transmission Date: 20180711
  Serious: No
  Sender: FDA-Public Use
  Company Number: US-JNJFOC-20180518214

PATIENT
  Age: 4 Year
  Sex: Male
  Weight: 27.67 kg

DRUGS (2)
  1. CHILDRENS ZYRTEC [Suspect]
     Active Substance: CETIRIZINE HYDROCHLORIDE
     Indication: MULTIPLE ALLERGIES
     Dosage: SOMETIMES SKIPS A DOSE OVER THE PAST 2 YEARS
     Route: 065
  2. CHILDRENS ZYRTEC [Suspect]
     Active Substance: CETIRIZINE HYDROCHLORIDE
     Indication: EYE SWELLING
     Dosage: SOMETIMES SKIPS A DOSE OVER THE PAST 2 YEARS
     Route: 065

REACTIONS (3)
  - Therapeutic response unexpected [Unknown]
  - Overdose [Unknown]
  - Product use in unapproved indication [Unknown]
